FAERS Safety Report 8617564-4 (Version None)
Quarter: 2012Q3

REPORT INFORMATION
  Report Type: 
  Country: None (occurrence: None)
  Receive Date: 20120824
  Receipt Date: 20120126
  Transmission Date: 20120928
  Serious: No
  Sender: FDA-Public Use
  Company Number: US-ASTRAZENECA-2011SE69580

PATIENT
  Age: 76 Year
  Sex: Female

DRUGS (3)
  1. FENOFIBRATE [Concomitant]
     Indication: BLOOD CHOLESTEROL INCREASED
  2. SYMBICORT [Suspect]
     Dosage: 160.4.5 MCG 2 PUFFS BID
     Route: 055
  3. SIMVASTATIN [Concomitant]
     Indication: BLOOD CHOLESTEROL INCREASED

REACTIONS (1)
  - INCREASED UPPER AIRWAY SECRETION [None]
